FAERS Safety Report 15256422 (Version 1)
Quarter: 2018Q4

REPORT INFORMATION
  Report Type: Spontaneous
  Country: AU (occurrence: AU)
  Receive Date: 20180808
  Receipt Date: 20180808
  Transmission Date: 20190204
  Serious: Yes (Hospitalization)
  Sender: FDA-Public Use
  Company Number: AU-MYLANLABS-2018M1059417

PATIENT
  Age: 44 Year
  Sex: Male

DRUGS (5)
  1. DOXYCYCLINE. [Suspect]
     Active Substance: DOXYCYCLINE
     Indication: ZOONOTIC BACTERIAL INFECTION
     Route: 042
  2. MEROPENEM. [Suspect]
     Active Substance: MEROPENEM
     Indication: ZOONOTIC BACTERIAL INFECTION
     Route: 042
  3. DIMERCAPTOSUCCINIC ACID DMSA [Suspect]
     Active Substance: 2,3-DIMERCAPTOSUCCINIC ACID
     Dosage: 10 MG/KG OF BODY WEIGHT TWICE DAILY FOR AN ADDITIONAL 2 WEEKS
     Route: 048
  4. DIMERCAPTOSUCCINIC ACID DMSA [Suspect]
     Active Substance: 2,3-DIMERCAPTOSUCCINIC ACID
     Indication: CHELATION THERAPY
     Dosage: 10 MG/KG OF BODY WEIGHT THREE TIMES DAILY FOR 5 DAYS
     Route: 048
  5. VANCOMYCIN [Suspect]
     Active Substance: VANCOMYCIN
     Indication: ZOONOTIC BACTERIAL INFECTION
     Route: 042

REACTIONS (2)
  - Pancytopenia [Unknown]
  - Hepatitis [Unknown]
